FAERS Safety Report 6064736-1 (Version None)
Quarter: 2009Q1

REPORT INFORMATION
  Report Type: 
  Country: None (occurrence: None)
  Receive Date: 20090204
  Receipt Date: 20080912
  Transmission Date: 20090719
  Serious: No
  Sender: FDA-Public Use
  Company Number: A0746804A

PATIENT
  Age: 66 Year
  Sex: Female

DRUGS (8)
  1. ARIXTRA [Suspect]
     Dosage: 2.5MG PER DAY
     Route: 058
     Dates: start: 20080830
  2. ATENOLOL [Concomitant]
  3. LISINOPRIL [Concomitant]
  4. HYDROCHLOROTHIAZIDE [Concomitant]
  5. ESTRACE [Concomitant]
  6. LEVOTHROID [Concomitant]
  7. PRILOSEC [Concomitant]
  8. CODEINE [Concomitant]

REACTIONS (2)
  - INJECTION SITE REACTION [None]
  - PRODUCT QUALITY ISSUE [None]
